FAERS Safety Report 18189081 (Version 3)
Quarter: 2020Q4

REPORT INFORMATION
  Report Type: Report from Study
  Country: FR (occurrence: FR)
  Receive Date: 20200824
  Receipt Date: 20201215
  Transmission Date: 20210113
  Serious: Yes (Death, Hospitalization, Other)
  Sender: FDA-Public Use
  Company Number: FR-BRISTOL-MYERS SQUIBB COMPANY-BMS-2020-067083

PATIENT
  Age: 55 Year
  Sex: Female
  Weight: 47.5 kg

DRUGS (1)
  1. NIVOLUMAB [Suspect]
     Active Substance: NIVOLUMAB
     Indication: HEAD AND NECK CANCER
     Dosage: 240 MILLIGRAM, Q2WK
     Route: 042
     Dates: start: 20200605

REACTIONS (8)
  - General physical health deterioration [Unknown]
  - Pericarditis malignant [Fatal]
  - Lymphangitis [Unknown]
  - Conjunctival pallor [Unknown]
  - Rectal haemorrhage [Unknown]
  - Disturbance in attention [Unknown]
  - Malignant neoplasm progression [Unknown]
  - Cachexia [Unknown]

NARRATIVE: CASE EVENT DATE: 20200611
